FAERS Safety Report 16873461 (Version 1)
Quarter: 2019Q4

REPORT INFORMATION
  Report Type: Spontaneous
  Country: US (occurrence: US)
  Receive Date: 20191001
  Receipt Date: 20191001
  Transmission Date: 20200122
  Serious: No
  Sender: FDA-Public Use
  Company Number: US-PFIZER INC-2019281454

PATIENT
  Age: 55 Year

DRUGS (2)
  1. LYRICA [Suspect]
     Active Substance: PREGABALIN
  2. PREMARIN [Suspect]
     Active Substance: ESTROGENS, CONJUGATED
     Dosage: UNK, 2X/WEEK (TWICE WEEKLY)

REACTIONS (2)
  - Product prescribing error [Unknown]
  - Malaise [Unknown]
